FAERS Safety Report 7263284-0 (Version None)
Quarter: 2011Q1

REPORT INFORMATION
  Report Type: 
  Country: None (occurrence: None)
  Receive Date: 20110130
  Receipt Date: 20100924
  Transmission Date: 20110831
  Serious: No
  Sender: FDA-Public Use
  Company Number: US-ABBOTT-10P-163-0673294-00

PATIENT
  Age: 50 Year
  Sex: Female

DRUGS (5)
  1. OMEPRAZOLE [Concomitant]
     Indication: GASTROOESOPHAGEAL REFLUX DISEASE
     Dosage: 20 MG DAILY
  2. FLEXERIL [Concomitant]
     Indication: INSOMNIA
  3. FLEXERIL [Concomitant]
     Indication: MUSCLE TIGHTNESS
  4. HUMIRA [Suspect]
     Indication: RHEUMATOID ARTHRITIS
     Dates: start: 20100601, end: 20100831
  5. MOBIC [Concomitant]
     Indication: OSTEOARTHRITIS
     Dosage: 15 MG DAILY

REACTIONS (5)
  - THROAT IRRITATION [None]
  - DIZZINESS [None]
  - NASAL CONGESTION [None]
  - SINUSITIS [None]
  - COUGH [None]
